FAERS Safety Report 23466632 (Version 1)
Quarter: 2024Q1

REPORT INFORMATION
  Report Type: Spontaneous
  Country: IN (occurrence: IN)
  Receive Date: 20240201
  Receipt Date: 20240201
  Transmission Date: 20240410
  Serious: Yes (Death, Other)
  Sender: FDA-Public Use
  Company Number: IN-MYLANLABS-2024M1010339

PATIENT
  Age: 50 Year
  Sex: Female

DRUGS (1)
  1. METHOTREXATE [Suspect]
     Active Substance: METHOTREXATE
     Indication: Psoriasis
     Dosage: 7.5 MG, QD
     Route: 065

REACTIONS (4)
  - Toxicity to various agents [Fatal]
  - Pancytopenia [Unknown]
  - Skin erosion [Unknown]
  - Mucosal ulceration [Unknown]
